FAERS Safety Report 18709555 (Version 4)
Quarter: 2021Q1

REPORT INFORMATION
  Report Type: Spontaneous
  Country: PL (occurrence: PL)
  Receive Date: 20210106
  Receipt Date: 20210125
  Transmission Date: 20210419
  Serious: No
  Sender: FDA-Public Use
  Company Number: PL-PFIZER INC-2021001936

PATIENT
  Age: 42 Year
  Sex: Male

DRUGS (9)
  1. OXYCODONE [Suspect]
     Active Substance: OXYCODONE
     Dosage: 100 MG, 3X/DAY
  2. FENTANYL. [Suspect]
     Active Substance: FENTANYL
     Indication: BREAKTHROUGH PAIN
     Dosage: 200 UG, AS NEEDED
     Route: 002
  3. FENTANYL. [Suspect]
     Active Substance: FENTANYL
     Dosage: 6 DF, DAILY (FREQUENTLY USED 6 TABLETS/DAY)
  4. FENTANYL. [Suspect]
     Active Substance: FENTANYL
     Dosage: 3?4 TABLETS DAILY
  5. PREGABALIN. [Suspect]
     Active Substance: PREGABALIN
     Dosage: 150 MG, 2X/DAY
  6. FENTANYL. [Suspect]
     Active Substance: FENTANYL
     Dosage: UNK, 1X/DAY
  7. OXYCODONE [Suspect]
     Active Substance: OXYCODONE
     Indication: PAIN
     Dosage: 80 MG, 3X/DAY
     Route: 048
  8. GABAPENTIN. [Suspect]
     Active Substance: GABAPENTIN
     Indication: PAIN
     Dosage: 300 MG, 3X/DAY (EVERY 8 HOURS)
  9. PREGABALIN. [Suspect]
     Active Substance: PREGABALIN
     Indication: PAIN
     Dosage: 150 MG, DAILY

REACTIONS (1)
  - Constipation [Recovered/Resolved]
